FAERS Safety Report 22001250 (Version 2)
Quarter: 2025Q1

REPORT INFORMATION
  Report Type: Report from Study
  Country: CZ (occurrence: CZ)
  Receive Date: 20230216
  Receipt Date: 20250128
  Transmission Date: 20250408
  Serious: No
  Sender: GILEAD
  Company Number: CZ-GILEAD-2023-0617077

PATIENT
  Age: 77 Year
  Sex: Male

DRUGS (1)
  1. IDELALISIB [Suspect]
     Active Substance: IDELALISIB
     Indication: Product used for unknown indication
     Route: 065

REACTIONS (1)
  - Unevaluable event [Unknown]
